FAERS Safety Report 9565077 (Version 1)
Quarter: 2013Q3

REPORT INFORMATION
  Report Type: Spontaneous
  Country: DE (occurrence: DE)
  Receive Date: 20130930
  Receipt Date: 20130930
  Transmission Date: 20140515
  Serious: Yes (Other)
  Sender: FDA-Public Use
  Company Number: GXKR2013DE003135

PATIENT
  Sex: Female

DRUGS (1)
  1. SUMATRIPTAN HEXAL [Suspect]
     Dosage: 7 TABLETS WITHIN 1 WEEK FOR YEARS
     Route: 048

REACTIONS (2)
  - Intentional drug misuse [Unknown]
  - Liver function test abnormal [Unknown]
